FAERS Safety Report 11023474 (Version 1)
Quarter: 2015Q2

REPORT INFORMATION
  Report Type: Spontaneous
  Country: AU (occurrence: AU)
  Receive Date: 20150413
  Receipt Date: 20150413
  Transmission Date: 20150821
  Serious: Yes (Disabling, Other)
  Sender: FDA-Public Use
  Company Number: AU-ELI_LILLY_AND_COMPANY-AU201504002202

PATIENT
  Age: 61 Year
  Sex: Female

DRUGS (5)
  1. DENOSUMAB [Concomitant]
     Active Substance: DENOSUMAB
     Dosage: UNK
     Dates: start: 20150105
  2. FORTEO [Suspect]
     Active Substance: TERIPARATIDE
     Dosage: UNK, QD
     Route: 065
     Dates: start: 20150331
  3. OSTELIN VITAMIN D [Concomitant]
     Indication: VITAMIN D DEFICIENCY
     Dosage: 25 UG, QD
  4. FORTEO [Suspect]
     Active Substance: TERIPARATIDE
     Indication: OSTEOPOROSIS
     Dosage: UNK, QD
     Route: 065
     Dates: start: 2012, end: 2013
  5. TAMOXIFEN [Concomitant]
     Active Substance: TAMOXIFEN
     Dosage: 20 MG, QD
     Dates: start: 20150105

REACTIONS (2)
  - Breast cancer metastatic [Unknown]
  - Metastases to bone [Unknown]

NARRATIVE: CASE EVENT DATE: 201402
